FAERS Safety Report 7685348-X (Version None)
Quarter: 2011Q3

REPORT INFORMATION
  Report Type: 
  Country: None (occurrence: None)
  Receive Date: 20110816
  Receipt Date: 20110805
  Transmission Date: 20111222
  Serious: Yes (Other)
  Sender: FDA-Public Use
  Company Number: CA-JNJFOC-20110306121

PATIENT
  Sex: Male
  Weight: 81 kg

DRUGS (3)
  1. REMICADE [Suspect]
     Indication: RHEUMATOID ARTHRITIS
     Route: 042
     Dates: start: 20100920
  2. METHOTREXATE [Concomitant]
     Route: 058
  3. REMICADE [Suspect]
     Dosage: 22-JUN-2011 WAS THE PATIENT'S 4TH INFLIXIMAB INFUSION
     Route: 042
     Dates: start: 20110622

REACTIONS (3)
  - IRITIS [None]
  - DRUG INEFFECTIVE [None]
  - ARTHRITIS [None]
